FAERS Safety Report 10222850 (Version 1)
Quarter: 2014Q2

REPORT INFORMATION
  Report Type: Spontaneous
  Country: MY (occurrence: MY)
  Receive Date: 20140606
  Receipt Date: 20140606
  Transmission Date: 20141212
  Serious: Yes (Other)
  Sender: FDA-Public Use
  Company Number: MY-ABBVIE-14P-101-1245223-00

PATIENT
  Age: 42 Year
  Sex: Female

DRUGS (4)
  1. EPILIM [Suspect]
     Indication: EPILEPSY
     Route: 048
  2. RIFAMPICIN [Suspect]
     Indication: TUBERCULOSIS
     Route: 048
  3. ISONIAZID [Suspect]
     Indication: TUBERCULOSIS
     Route: 048
  4. TEGRETOL [Suspect]
     Indication: EPILEPSY
     Route: 048

REACTIONS (3)
  - Pulmonary haemorrhage [Not Recovered/Not Resolved]
  - Thrombocytopenia [Not Recovered/Not Resolved]
  - Liver injury [Not Recovered/Not Resolved]
